FAERS Safety Report 18924903 (Version 1)
Quarter: 2021Q1

REPORT INFORMATION
  Report Type: Report from Study
  Country: KR (occurrence: KR)
  Receive Date: 20210222
  Receipt Date: 20210222
  Transmission Date: 20210420
  Serious: Yes (Other)
  Sender: FDA-Public Use
  Company Number: KR-EISAI MEDICAL RESEARCH-EC-2021-088322

PATIENT
  Age: 55 Year
  Sex: Male
  Weight: 52.2 kg

DRUGS (6)
  1. LENVATINIB [Suspect]
     Active Substance: LENVATINIB
     Indication: HEPATOCELLULAR CARCINOMA
     Route: 048
     Dates: start: 20190729, end: 20190809
  2. MAGO [Concomitant]
     Indication: GASTRITIS
     Route: 048
     Dates: start: 20190729
  3. VIREAD [Concomitant]
     Active Substance: TENOFOVIR DISOPROXIL FUMARATE
     Indication: CHRONIC HEPATITIS B
     Route: 048
     Dates: start: 20190729
  4. LIRECTAN [Concomitant]
     Indication: HEPATIC CIRRHOSIS
     Route: 048
     Dates: start: 20190729
  5. MEGACE F [Concomitant]
     Indication: PROPHYLAXIS
     Route: 048
     Dates: start: 20190729
  6. DULCOLAX?S [Concomitant]
     Indication: PROPHYLAXIS
     Route: 048
     Dates: start: 20190729

REACTIONS (1)
  - Hepatic failure [Recovering/Resolving]

NARRATIVE: CASE EVENT DATE: 20190809
